FAERS Safety Report 8360031-6 (Version None)
Quarter: 2012Q2

REPORT INFORMATION
  Report Type: 
  Country: None (occurrence: None)
  Receive Date: 20120515
  Receipt Date: 20120507
  Transmission Date: 20120825
  Serious: Yes (Disabling, Other)
  Sender: FDA-Public Use
  Company Number: US-BAYER-2011-108051

PATIENT
  Age: 41 Year
  Sex: Female
  Weight: 61.224 kg

DRUGS (4)
  1. YASMIN [Suspect]
     Indication: CONTRACEPTION
     Dosage: UNK
     Dates: start: 20030629, end: 20060717
  2. ASPIRIN [Concomitant]
  3. ZOCOR [Concomitant]
     Indication: TYPE V HYPERLIPIDAEMIA
     Dosage: 40 MG, HS
     Route: 048
  4. PLAVIX [Concomitant]

REACTIONS (6)
  - CEREBRAL INFARCTION [None]
  - PAIN [None]
  - MOBILITY DECREASED [None]
  - MEMORY IMPAIRMENT [None]
  - INJURY [None]
  - ANXIETY [None]
